FAERS Safety Report 9291204 (Version 1)
Quarter: 2013Q2

REPORT INFORMATION
  Report Type: Report from Study
  Country: CA (occurrence: CA)
  Receive Date: 20130515
  Receipt Date: 20130515
  Transmission Date: 20140414
  Serious: Yes (Hospitalization)
  Sender: FDA-Public Use
  Company Number: CA-ABBOTT-13P-028-1089739-00

PATIENT
  Sex: Male

DRUGS (1)
  1. HUMIRA [Suspect]
     Indication: PSORIATIC ARTHROPATHY
     Route: 058
     Dates: start: 20120623, end: 20121125

REACTIONS (5)
  - Asthenia [Unknown]
  - Fall [Unknown]
  - Headache [Unknown]
  - Diarrhoea [Unknown]
  - Mobility decreased [Unknown]
